FAERS Safety Report 7734449 (Version 2)
Quarter: 2013Q3

REPORT INFORMATION
  Report Type: Spontaneous
  Country: US (occurrence: US)
  Receive Date: 20101223
  Receipt Date: 20130819
  Transmission Date: 20140515
  Serious: Yes (Hospitalization, Other)
  Sender: FDA-Public Use
  Company Number: US-ROCHE-727211

PATIENT
  Age: 34 Year
  Sex: Male

DRUGS (1)
  1. ACCUTANE [Suspect]
     Indication: ACNE
     Route: 065
     Dates: start: 198206, end: 1984

REACTIONS (8)
  - Crohn^s disease [Unknown]
  - Pelvic abscess [Unknown]
  - Ileal perforation [Unknown]
  - Ileal fistula [Unknown]
  - Colonic fistula [Unknown]
  - Nephrolithiasis [Unknown]
  - Deep vein thrombosis [Unknown]
  - Gastrointestinal injury [Unknown]
